FAERS Safety Report 6681000-8 (Version None)
Quarter: 2010Q2

REPORT INFORMATION
  Report Type: 
  Country: None (occurrence: None)
  Receive Date: 20100413
  Receipt Date: 20100413
  Transmission Date: 20101027
  Serious: Yes (Hospitalization)
  Sender: FDA-Public Use
  Company Number: None

PATIENT
  Sex: Female
  Weight: 16.3 kg

DRUGS (4)
  1. PREDNISONE [Suspect]
     Dosage: 65 MG
     Dates: end: 20100408
  2. VINCRISTINE SULFATE [Suspect]
     Dosage: 1 MG
     Dates: end: 20100406
  3. MERCAPTOPURINE [Suspect]
     Dosage: 100 MG
     Dates: end: 20100407
  4. METHOTREXATE [Suspect]
     Dosage: 12 MG
     Dates: end: 20100406

REACTIONS (2)
  - GLUCOSE URINE PRESENT [None]
  - HYPERGLYCAEMIA [None]
